FAERS Safety Report 14336861 (Version 1)
Quarter: 2017Q4

REPORT INFORMATION
  Report Type: Spontaneous
  Country: AU (occurrence: AU)
  Receive Date: 20171229
  Receipt Date: 20171229
  Transmission Date: 20180321
  Serious: Yes (Other)
  Sender: FDA-Public Use
  Company Number: PHHY2017AU188767

PATIENT
  Age: 18 Year
  Sex: Female

DRUGS (2)
  1. OCTREOTIDE HYDROCHLORIDE [Suspect]
     Active Substance: OCTREOTIDE HYDROCHLORIDE
     Indication: ACROMEGALY
     Dosage: 10 MG, UNK
     Route: 058
  2. OCTREOTIDE HYDROCHLORIDE [Suspect]
     Active Substance: OCTREOTIDE HYDROCHLORIDE
     Dosage: 30 MG, UNK
     Route: 058

REACTIONS (5)
  - Hyperglycaemia [Unknown]
  - Insulin-like growth factor increased [Unknown]
  - Blood growth hormone increased [Unknown]
  - Diabetic ketoacidosis [Unknown]
  - Drug ineffective [Unknown]
